FAERS Safety Report 11518587 (Version 1)
Quarter: 2015Q3

REPORT INFORMATION
  Report Type: Spontaneous
  Country: JP (occurrence: JP)
  Receive Date: 20150917
  Receipt Date: 20150917
  Transmission Date: 20151125
  Serious: Yes (Life-Threatening, Other)
  Sender: FDA-Public Use
  Company Number: JP-TAKEDA-2015TJP009212

PATIENT
  Age: 64 Year
  Sex: Male
  Weight: 66 kg

DRUGS (37)
  1. AMARYL [Concomitant]
     Active Substance: GLIMEPIRIDE
     Dosage: 2 MG, TID
     Route: 048
     Dates: start: 20100522, end: 20110128
  2. EQUA [Concomitant]
     Active Substance: VILDAGLIPTIN
     Dosage: 50 MG, BID
     Route: 048
     Dates: start: 20130525
  3. AMARYL [Concomitant]
     Active Substance: GLIMEPIRIDE
     Dosage: 2 UNK, BID
     Route: 048
     Dates: start: 20090829, end: 20091225
  4. AMARYL [Concomitant]
     Active Substance: GLIMEPIRIDE
     Dosage: 2 MG, BID
     Route: 048
     Dates: start: 20100123, end: 20100521
  5. AMARYL [Concomitant]
     Active Substance: GLIMEPIRIDE
     Dosage: 1 MG, BID
     Route: 048
     Dates: start: 20110423, end: 20111125
  6. GASTER [Concomitant]
     Active Substance: FAMOTIDINE
     Dosage: 20 MG, UNK
     Route: 048
     Dates: start: 20090905
  7. NOVORAPID [Concomitant]
     Active Substance: INSULIN ASPART
     Dosage: 9 IU, UNK
     Route: 050
     Dates: start: 20140125, end: 20140221
  8. NOVORAPID [Concomitant]
     Active Substance: INSULIN ASPART
     Dosage: 5 IU, QD
     Route: 050
     Dates: start: 20140222, end: 20140530
  9. NOVORAPID [Concomitant]
     Active Substance: INSULIN ASPART
     Dosage: 6 IU, QD
     Route: 050
     Dates: start: 20140531, end: 20140627
  10. NOVORAPID [Concomitant]
     Active Substance: INSULIN ASPART
     Dosage: 5 IU, QD
     Route: 050
     Dates: start: 20140222, end: 20140321
  11. BLOPRESS [Concomitant]
     Active Substance: CANDESARTAN CILEXETIL
     Dosage: 4 MG, UNK
     Route: 048
     Dates: start: 20131214
  12. GLACTIV [Concomitant]
     Active Substance: SITAGLIPTIN
     Dosage: 50 MG, QD
     Route: 048
     Dates: start: 20111224, end: 20130524
  13. NOVORAPID [Concomitant]
     Active Substance: INSULIN ASPART
     Dosage: 8 IU, QD
     Route: 050
     Dates: start: 20130803, end: 20130906
  14. GLUFAST [Suspect]
     Active Substance: MITIGLINIDE
     Indication: PRODUCT USED FOR UNKNOWN INDICATION
     Dosage: 10 MG, QD
     Route: 048
     Dates: start: 20130222
  15. AMARYL [Concomitant]
     Active Substance: GLIMEPIRIDE
     Dosage: 1 MG, TID
     Route: 048
     Dates: start: 20110129, end: 20110422
  16. GLACTIV [Concomitant]
     Active Substance: SITAGLIPTIN
     Dosage: 50 MG, QD
     Route: 048
     Dates: start: 20110129, end: 20111123
  17. LIPIDIL [Concomitant]
     Active Substance: FENOFIBRATE
     Dosage: 100 MG, UNK
     Route: 048
     Dates: start: 20090905, end: 20110325
  18. NOVORAPID [Concomitant]
     Active Substance: INSULIN ASPART
     Dosage: 7 IU, BID
     Route: 050
     Dates: start: 20140726
  19. BLOPRESS [Concomitant]
     Active Substance: CANDESARTAN CILEXETIL
     Dosage: 4 MG, UNK
     Route: 048
     Dates: start: 20100731, end: 20110729
  20. AMARYL [Concomitant]
     Active Substance: GLIMEPIRIDE
     Dosage: 2 UNK, TID
     Route: 048
     Dates: start: 20091226, end: 20100122
  21. AMARYL [Concomitant]
     Active Substance: GLIMEPIRIDE
     Dosage: 1 MG, TID
     Route: 048
     Dates: start: 20111126, end: 20120330
  22. AMARYL [Concomitant]
     Active Substance: GLIMEPIRIDE
     Dosage: 2 UNK, BID
     Route: 048
     Dates: start: 20120331, end: 20130524
  23. LIVALO [Concomitant]
     Active Substance: PITAVASTATIN CALCIUM
     Dosage: 1 MG, UNK
     Route: 048
     Dates: start: 20120128
  24. ZYLORIC [Concomitant]
     Active Substance: ALLOPURINOL
     Dosage: 100 MG, UNK
     Route: 048
     Dates: start: 20120128
  25. NOVORAPID [Concomitant]
     Active Substance: INSULIN ASPART
     Dosage: 6 IU, QD
     Route: 050
     Dates: start: 20130629, end: 20130802
  26. NOVORAPID [Concomitant]
     Active Substance: INSULIN ASPART
     Dosage: 7 IU, QD
     Route: 050
     Dates: start: 20140628, end: 20140725
  27. LANTUS [Concomitant]
     Active Substance: INSULIN GLARGINE
     Dosage: 6 IU, QD
     Route: 050
     Dates: start: 20121027, end: 20130125
  28. ACTOS [Suspect]
     Active Substance: PIOGLITAZONE HYDROCHLORIDE
     Indication: DIABETES MELLITUS
     Dosage: 15 MG, QD
     Route: 048
     Dates: start: 20100731, end: 20150424
  29. BLOPRESS [Concomitant]
     Active Substance: CANDESARTAN CILEXETIL
     Dosage: 2 MG, UNK
     Route: 048
     Dates: start: 20110730, end: 20130802
  30. AMARYL [Concomitant]
     Active Substance: GLIMEPIRIDE
     Dosage: 1 MG, BID
     Route: 048
     Dates: start: 20130525, end: 20140124
  31. LIVALO [Concomitant]
     Active Substance: PITAVASTATIN CALCIUM
     Dosage: 1 MG, UNK
     Route: 048
     Dates: start: 20110508, end: 20111113
  32. NOVORAPID [Concomitant]
     Active Substance: INSULIN ASPART
     Dosage: 4 IU, BID
     Route: 050
     Dates: start: 20130907, end: 20131004
  33. NOVORAPID [Concomitant]
     Active Substance: INSULIN ASPART
     Dosage: 7 IU, QD
     Route: 050
     Dates: start: 20140628, end: 20140725
  34. NOVORAPID [Concomitant]
     Active Substance: INSULIN ASPART
     Dosage: 6 IU, QD
     Route: 050
     Dates: start: 20140322, end: 20140627
  35. ZYLORIC [Concomitant]
     Active Substance: ALLOPURINOL
     Dosage: 100 MG, UNK
     Route: 048
     Dates: start: 20110924, end: 20111113
  36. NOVORAPID [Concomitant]
     Active Substance: INSULIN ASPART
     Dosage: 5 IU, BID
     Route: 050
     Dates: start: 20131005, end: 20140124
  37. LANTUS [Concomitant]
     Active Substance: INSULIN GLARGINE
     Dosage: 8 IU, QD
     Route: 050
     Dates: start: 20130126, end: 20130628

REACTIONS (1)
  - Bladder cancer [Recovered/Resolved]

NARRATIVE: CASE EVENT DATE: 20150317
